FAERS Safety Report 6598725-5 (Version None)
Quarter: 2010Q1

REPORT INFORMATION
  Report Type: 
  Country: None (occurrence: None)
  Receive Date: 20100224
  Receipt Date: 20100215
  Transmission Date: 20100710
  Serious: Yes (Life-Threatening)
  Sender: FDA-Public Use
  Company Number: DK-TYCO HEALTHCARE/MALLINCKRODT-T201000633

PATIENT
  Sex: Female
  Weight: 60 kg

DRUGS (11)
  1. OPTIRAY 350 [Suspect]
     Indication: COMPUTERISED TOMOGRAM
     Dosage: 50 ML, SINGLE
     Route: 042
     Dates: start: 20091123, end: 20091123
  2. ELTROXIN [Concomitant]
     Dosage: 50 ?G, UNK
     Route: 048
  3. ELTROXIN [Concomitant]
     Dosage: 100 ?G, UNK
     Route: 048
  4. LANSOPRAZOLE [Concomitant]
     Dosage: 30 MG, UNK
     Dates: start: 20081201
  5. DUSPATALIN                         /00139402/ [Concomitant]
     Dosage: 200 MG, UNK
     Route: 048
  6. CIRCADIN [Concomitant]
     Dosage: 2 MG, UNK
     Route: 048
  7. ACETAMINOPHEN [Concomitant]
     Dosage: 750 MG, UNK
  8. SIFROL [Concomitant]
     Dosage: 0.088 MG, UNK
     Route: 048
  9. FEMANOR [Concomitant]
     Dosage: 1+2 MG, UNK
     Route: 048
  10. ANTABUSE [Concomitant]
     Dosage: 400 MG, UNK
     Route: 048
  11. HYDROCHLOROTHIAZIDE W/RAMIPRIL [Concomitant]
     Dosage: 5+25 MG, UNK
     Dates: start: 20090701

REACTIONS (1)
  - TOXIC EPIDERMAL NECROLYSIS [None]
